FAERS Safety Report 14697904 (Version 1)
Quarter: 2018Q1

REPORT INFORMATION
  Report Type: Spontaneous
  Country: US (occurrence: US)
  Receive Date: 20180330
  Receipt Date: 20180330
  Transmission Date: 20180509
  Serious: No
  Sender: FDA-Public Use
  Company Number: US-JNJFOC-20180312356

PATIENT
  Sex: Female

DRUGS (2)
  1. MOTRIN INFANTS [Suspect]
     Active Substance: IBUPROFEN
     Indication: ACCIDENTAL EXPOSURE TO PRODUCT
     Route: 047
     Dates: start: 20180307, end: 20180307
  2. MOTRIN INFANTS [Suspect]
     Active Substance: IBUPROFEN
     Route: 047

REACTIONS (3)
  - Eye irritation [Not Recovered/Not Resolved]
  - Accidental exposure to product [Unknown]
  - Vision blurred [Not Recovered/Not Resolved]

NARRATIVE: CASE EVENT DATE: 20180307
